FAERS Safety Report 12278700 (Version 4)
Quarter: 2016Q2

REPORT INFORMATION
  Report Type: Report from Study
  Country: US (occurrence: US)
  Receive Date: 20160418
  Receipt Date: 20160610
  Transmission Date: 20160815
  Serious: Yes (Hospitalization)
  Sender: FDA-Public Use
  Company Number: US-ACTELION-A-US2016-134412

PATIENT
  Age: 69 Year
  Sex: Female

DRUGS (3)
  1. DILTIAZEM [Concomitant]
     Active Substance: DILTIAZEM
  2. TYVASO [Concomitant]
     Active Substance: TREPROSTINIL
  3. OPSUMIT [Suspect]
     Active Substance: MACITENTAN
     Indication: PULMONARY ARTERIAL HYPERTENSION
     Dosage: 10 MG, QD
     Route: 048
     Dates: start: 20150406

REACTIONS (2)
  - Gallbladder disorder [Unknown]
  - Gallbladder operation [Recovering/Resolving]
